FAERS Safety Report 8047543-X (Version None)
Quarter: 2012Q1

REPORT INFORMATION
  Report Type: 
  Country: None (occurrence: None)
  Receive Date: 20120116
  Receipt Date: 20120112
  Transmission Date: 20120608
  Serious: Yes (Hospitalization)
  Sender: FDA-Public Use
  Company Number: US-GLAXOSMITHKLINE-A0898662A

PATIENT
  Age: 66 Year
  Sex: Male
  Weight: 125 kg

DRUGS (10)
  1. PROGRAF [Concomitant]
  2. PREDNISONE [Concomitant]
  3. LIPITOR [Concomitant]
  4. AVAPRO [Concomitant]
  5. MYCOPHENOLATE MOFETIL (CELLCEPT) [Concomitant]
  6. STARLIX [Concomitant]
  7. ZETIA [Concomitant]
  8. AVANDIA [Suspect]
     Indication: DIABETES MELLITUS
     Dosage: 8MG PER DAY
     Route: 048
     Dates: start: 20060501, end: 20091001
  9. AVANDARYL [Suspect]
     Indication: DIABETES MELLITUS
     Route: 048
  10. JANUVIA [Concomitant]

REACTIONS (5)
  - CARDIAC DISORDER [None]
  - MUSCULOSKELETAL DISORDER [None]
  - LIVER INJURY [None]
  - RENAL INJURY [None]
  - CARDIAC FAILURE CONGESTIVE [None]
